FAERS Safety Report 5001159-8 (Version None)
Quarter: 2006Q2

REPORT INFORMATION
  Report Type: 
  Country: None (occurrence: None)
  Receive Date: 20060512
  Receipt Date: 20060502
  Transmission Date: 20061013
  Serious: Yes (Hospitalization)
  Sender: FDA-Public Use
  Company Number: FR-ABBOTT-06P-056-0332196-00

PATIENT
  Age: 59 Year
  Sex: Male

DRUGS (9)
  1. LIPANTHYL CAPSULES [Suspect]
     Indication: HYPERLIPIDAEMIA
     Route: 048
  2. FLUINDIONE [Interacting]
     Indication: DRUG USE FOR UNKNOWN INDICATION
     Dates: end: 20051130
  3. FLUINDIONE [Interacting]
     Dates: end: 20051130
  4. DILTIAZEM HYDROCHLORIDE [Concomitant]
     Indication: DRUG USE FOR UNKNOWN INDICATION
  5. FEXOFENADINE [Concomitant]
     Indication: DRUG USE FOR UNKNOWN INDICATION
  6. INSULIN ASPART [Concomitant]
     Indication: DRUG USE FOR UNKNOWN INDICATION
  7. INSULIN ASPART [Concomitant]
  8. RAMIPRIL [Concomitant]
     Indication: DRUG USE FOR UNKNOWN INDICATION
  9. INSULIN INITARD NORDISK [Concomitant]
     Indication: DRUG USE FOR UNKNOWN INDICATION

REACTIONS (6)
  - ABDOMINAL PAIN UPPER [None]
  - DRUG INTERACTION [None]
  - EROSIVE DUODENITIS [None]
  - INTERNATIONAL NORMALISED RATIO INCREASED [None]
  - RECTAL HAEMORRHAGE [None]
  - SHOCK [None]
